FAERS Safety Report 16700764 (Version 2)
Quarter: 2019Q3

REPORT INFORMATION
  Report Type: Report from Study
  Country: FR (occurrence: FR)
  Receive Date: 20190814
  Receipt Date: 20190821
  Transmission Date: 20191004
  Serious: Yes (Other)
  Sender: FDA-Public Use
  Company Number: FR-AUROBINDO-AUR-APL-2019-052827

PATIENT

DRUGS (1)
  1. CETIRIZINE [Suspect]
     Active Substance: CETIRIZINE HYDROCHLORIDE
     Indication: ANTIALLERGIC THERAPY
     Dosage: 0.3 MILLIGRAM/KILOGRAM, ONCE A DAY (.3 MG/KG DAILY; 10 DROPS OF CETIRIZINE PER DAY FOR SEVEN DAYS)
     Route: 048

REACTIONS (3)
  - Toxicity to various agents [Unknown]
  - Hallucination [Unknown]
  - Delirium [Unknown]
